FAERS Safety Report 22635469 (Version 1)
Quarter: 2023Q2

REPORT INFORMATION
  Report Type: Report from Study
  Country: CN (occurrence: None)
  Receive Date: 20230623
  Receipt Date: 20230623
  Transmission Date: 20230721
  Serious: Yes (Hospitalization)
  Sender: FDA-Public Use
  Company Number: 2023A143547

PATIENT
  Age: 368 Month
  Sex: Female

DRUGS (1)
  1. CILGAVIMAB\TIXAGEVIMAB [Suspect]
     Active Substance: CILGAVIMAB\TIXAGEVIMAB
     Indication: COVID-19
     Route: 030

REACTIONS (1)
  - Uterine leiomyoma [Recovering/Resolving]

NARRATIVE: CASE EVENT DATE: 20230615
